FAERS Safety Report 6696407-2 (Version None)
Quarter: 2010Q2

REPORT INFORMATION
  Report Type: 
  Country: None (occurrence: None)
  Receive Date: 20100426
  Receipt Date: 20100420
  Transmission Date: 20101027
  Serious: Yes (Death, Hospitalization)
  Sender: FDA-Public Use
  Company Number: US-ROCHE-633801

PATIENT
  Sex: Female
  Weight: 95.1 kg

DRUGS (12)
  1. TOCILIZUMAB [Suspect]
     Indication: RHEUMATOID ARTHRITIS
     Dosage: FORM: INFUSION, LAST DOSE PRIOR TO SAE: 30 APRIL 2009
     Route: 042
     Dates: start: 20060503, end: 20090609
  2. TOCILIZUMAB [Suspect]
     Dosage: THE PATIENT WAS PREVIOUSLY ENROLLED IN WA18063 AND RECEIVED 8MG/KG, FORM :INFUSION
     Route: 042
  3. CLARITIN [Concomitant]
     Dates: start: 20080417
  4. FOLIC ACID [Concomitant]
     Dates: start: 20090114
  5. METHOTREXATE [Concomitant]
     Route: 048
     Dates: start: 20090314
  6. NAPROXEN [Concomitant]
     Dates: start: 20090114
  7. PREMARIN [Concomitant]
     Dates: start: 20081230
  8. OSCAL [Concomitant]
     Dosage: DRUG REPORTED AS : OSCAL 500/200
     Dates: start: 20050728
  9. NASACORT [Concomitant]
     Dosage: TOTAL DAILY DOSE: 2 PUFFS
     Dates: start: 20081201
  10. CENTRUM [Concomitant]
     Dosage: DRUG AS : CENTARIM VITAMIN, TOTAL DAILY DOSE AS : 1 TAP
     Dates: start: 20081105
  11. BUTALBITAL W/ ASPIRIN + CAFFEINE [Concomitant]
     Dosage: DRUG REPORTED AS; BUTAL/ASA/CAFF/COD56/325/40/30
     Dates: start: 20080924
  12. LOTREL [Concomitant]
     Dosage: DRUG NAME: LOTREL 1C/40
     Dates: start: 20081119, end: 20090609

REACTIONS (3)
  - ACUTE RESPIRATORY DISTRESS SYNDROME [None]
  - PNEUMONIA BLASTOMYCES [None]
  - RENAL FAILURE [None]
